FAERS Safety Report 5369801-X (Version None)
Quarter: 2007Q2

REPORT INFORMATION
  Report Type: 
  Country: None (occurrence: None)
  Receive Date: 20070620
  Receipt Date: 20070611
  Transmission Date: 20071010
  Serious: Yes (Other)
  Sender: FDA-Public Use
  Company Number: 2007323769

PATIENT
  Age: 80 Year
  Sex: Male
  Weight: 82.5547 kg

DRUGS (2)
  1. BENADRYL [Suspect]
     Indication: RASH
     Dosage: 1 TABLET 6 HOURS (4 IN 1 D); ORAL
     Route: 048
     Dates: start: 20070401, end: 20070610
  2. TRAVATAN [Concomitant]

REACTIONS (1)
  - HALLUCINATION, VISUAL [None]
